FAERS Safety Report 4402062-4 (Version None)
Quarter: 2004Q3

REPORT INFORMATION
  Report Type: 
  Country: None (occurrence: None)
  Receive Date: 20040714
  Receipt Date: 20040625
  Transmission Date: 20050211
  Serious: Yes (Death)
  Sender: FDA-Public Use
  Company Number: USA040671231

PATIENT
  Sex: Male

DRUGS (1)
  1. ZYPREXA [Suspect]
     Route: 048

REACTIONS (2)
  - LIPIDS INCREASED [None]
  - PANCREATITIS [None]
